FAERS Safety Report 19843261 (Version 3)
Quarter: 2021Q4

REPORT INFORMATION
  Report Type: Spontaneous
  Country: JP (occurrence: JP)
  Receive Date: 20210917
  Receipt Date: 20211110
  Transmission Date: 20220303
  Serious: Yes (Other)
  Sender: FDA-Public Use
  Company Number: JP-CHUGAI-2021016992

PATIENT
  Age: 51 Year
  Sex: Male

DRUGS (7)
  1. ACTEMRA [Suspect]
     Active Substance: TOCILIZUMAB
     Indication: Cytokine release syndrome
     Dosage: UNK
     Route: 041
  2. KYMRIAH [Suspect]
     Active Substance: TISAGENLECLEUCEL
     Indication: Diffuse large B-cell lymphoma refractory
     Dosage: 4.5X10^8 CAR-POSITIVE VIABLE T CELLS
     Route: 041
     Dates: start: 20210104, end: 20210104
  3. MITOXANTRONE HYDROCHLORIDE [Concomitant]
     Active Substance: MITOXANTRONE HYDROCHLORIDE
     Dosage: UNK
     Route: 065
  4. IFOSFAMIDE [Concomitant]
     Active Substance: IFOSFAMIDE
     Dosage: UNK
     Route: 065
  5. MESNA [Concomitant]
     Active Substance: MESNA
     Dosage: UNK
     Route: 065
  6. ETOPOSIDE [Concomitant]
     Active Substance: ETOPOSIDE
     Dosage: UNK
     Route: 065
  7. RITUXAN [Concomitant]
     Active Substance: RITUXIMAB
     Dosage: UNK
     Route: 065

REACTIONS (1)
  - Diffuse large B-cell lymphoma [Recovered/Resolved]
